FAERS Safety Report 15556637 (Version 1)
Quarter: 2018Q4

REPORT INFORMATION
  Report Type: Spontaneous
  Country: US (occurrence: US)
  Receive Date: 20181026
  Receipt Date: 20181026
  Transmission Date: 20190205
  Serious: Yes (Other)
  Sender: FDA-Public Use
  Company Number: US-AMGEN-USASP2018147624

PATIENT
  Age: 47 Year
  Sex: Female

DRUGS (2)
  1. ENBREL [Suspect]
     Active Substance: ETANERCEPT
     Indication: NECK PAIN
     Dosage: UNK
     Route: 065
     Dates: end: 201707
  2. ENBREL [Suspect]
     Active Substance: ETANERCEPT
     Indication: BACK PAIN

REACTIONS (3)
  - Ill-defined disorder [Unknown]
  - Drug effect decreased [Unknown]
  - Hernia [Unknown]
